FAERS Safety Report 6846903-X (Version None)
Quarter: 2010Q3

REPORT INFORMATION
  Report Type: 
  Country: None (occurrence: None)
  Receive Date: 20100715
  Receipt Date: 20070920
  Transmission Date: 20110219
  Serious: No
  Sender: FDA-Public Use
  Company Number: US-PFIZER INC-2007079675

PATIENT
  Age: 53 Year
  Sex: Female
  Weight: 71.4 kg

DRUGS (1)
  1. CHANTIX [Suspect]
     Indication: SMOKING CESSATION THERAPY
     Dates: start: 20070801

REACTIONS (2)
  - ABNORMAL DREAMS [None]
  - IRRITABILITY [None]
